FAERS Safety Report 20491169 (Version 2)
Quarter: 2022Q1

REPORT INFORMATION
  Report Type: Spontaneous
  Country: US (occurrence: US)
  Receive Date: 20220218
  Receipt Date: 20220301
  Transmission Date: 20220423
  Serious: Yes (Other)
  Sender: FDA-Public Use
  Company Number: US-GLAUKOS-AVE-2021-0258-AE

PATIENT
  Sex: Male

DRUGS (33)
  1. PHOTREXA VISCOUS [Suspect]
     Active Substance: RIBOFLAVIN 5^-PHOSPHATE SODIUM
     Route: 047
     Dates: start: 20210810, end: 20210810
  2. DEVICE [Suspect]
     Active Substance: DEVICE
     Indication: Keratoconus
     Route: 047
     Dates: start: 20210810, end: 20210810
  3. SYSTANE (POLYETHYLENE GLYCOL 400\PROPYLENE GLYCOL) [Suspect]
     Active Substance: POLYETHYLENE GLYCOL 400\PROPYLENE GLYCOL
     Indication: Analgesic therapy
  4. TOBRADEX [Suspect]
     Active Substance: DEXAMETHASONE\TOBRAMYCIN
     Indication: Product used for unknown indication
     Dosage: LEFT EYE 3 X DAILY
     Route: 047
  5. MAXITROL [Suspect]
     Active Substance: DEXAMETHASONE\NEOMYCIN SULFATE\POLYMYXIN B SULFATE
     Indication: Product used for unknown indication
     Dosage: LEFT EYE 1 DROP 3.5MG/ML-10,000UNIT/ML-0.1%, 4 X DAILY
     Route: 047
  6. MAXITROL [Suspect]
     Active Substance: DEXAMETHASONE\NEOMYCIN SULFATE\POLYMYXIN B SULFATE
     Indication: Product used for unknown indication
     Dosage: LEFT EYE 1 APPLICATION 3.5 MG/G-10,000 UNIT/G-0.1%, AT BEDTIME
     Route: 047
  7. PREDNISOLONE ACETATE [Suspect]
     Active Substance: PREDNISOLONE ACETATE
     Indication: Product used for unknown indication
     Dosage: LEFT EYE 3X DAILY
     Route: 047
     Dates: start: 20210910
  8. PREDNISOLONE ACETATE [Suspect]
     Active Substance: PREDNISOLONE ACETATE
     Dosage: LEFT EYE 1 DROP EVERY 1 HOUR
     Route: 047
     Dates: start: 20210913, end: 20220109
  9. PREDNISOLONE ACETATE [Suspect]
     Active Substance: PREDNISOLONE ACETATE
     Dosage: LEFT EYE 1 DROP 3X DAILY
     Route: 047
     Dates: start: 20210924, end: 20220109
  10. LOSARTAN [Concomitant]
     Active Substance: LOSARTAN
     Indication: Product used for unknown indication
  11. LEXAPRO [Concomitant]
     Active Substance: ESCITALOPRAM OXALATE
     Indication: Product used for unknown indication
  12. CRESTOR [Concomitant]
     Active Substance: ROSUVASTATIN CALCIUM
     Indication: Product used for unknown indication
  13. AMBIEN [Concomitant]
     Active Substance: ZOLPIDEM TARTRATE
     Indication: Product used for unknown indication
  14. PROVENTIL HFA [Concomitant]
     Active Substance: ALBUTEROL SULFATE
     Indication: Wheezing
     Dosage: 90MCG INHALE 2 PUFFS INTO THE LINGS EVERY 4 HOURS AS NEEDED
  15. APREMILAST [Concomitant]
     Active Substance: APREMILAST
     Dosage: 30MG
     Route: 048
  16. ASPIRIN [Concomitant]
     Active Substance: ASPIRIN
     Indication: Product used for unknown indication
     Dosage: 81MG DAILY
  17. DIPROLENE [Concomitant]
     Active Substance: BETAMETHASONE DIPROPIONATE
     Indication: Psoriasis
     Dosage: APPLY TO AFFECTED AREA OF SKIN DAILY
     Route: 061
  18. VALIUM [Concomitant]
     Active Substance: DIAZEPAM
     Indication: Product used for unknown indication
     Dosage: 5MG 2X DAILY
     Route: 048
  19. ELIQUIS [Concomitant]
     Active Substance: APIXABAN
     Indication: Product used for unknown indication
     Dosage: 5MG 2X DAILY
     Route: 048
  20. LEXAPRO [Concomitant]
     Active Substance: ESCITALOPRAM OXALATE
  21. FOLIC ACID [Concomitant]
     Active Substance: FOLIC ACID
     Indication: Product used for unknown indication
     Dosage: 1MG ON ALL DAYS EXCEPT DAYS TAKING METHOTREXATE
     Route: 048
  22. HYDRODIURIL [Concomitant]
     Active Substance: HYDROCHLOROTHIAZIDE
     Dosage: 12.5MG
     Route: 048
  23. NORCO [Concomitant]
     Active Substance: ACETAMINOPHEN\HYDROCODONE BITARTRATE
     Indication: Pain
     Dosage: 10-325MG, 1X DAILY AS NEEDED
     Route: 048
  24. COZAAR [Concomitant]
     Active Substance: LOSARTAN POTASSIUM
     Indication: Product used for unknown indication
     Dosage: 100MG DAILY
     Route: 048
  25. AMBIEN [Concomitant]
     Active Substance: ZOLPIDEM TARTRATE
     Indication: Product used for unknown indication
     Dosage: 5MG DAILY AT BEDTIME
     Route: 048
  26. VENTOLIN HFA [Concomitant]
     Active Substance: ALBUTEROL SULFATE
     Indication: Wheezing
     Dosage: 90MCG INHALE 2 PUFFS INTO LUNGS EVERY 4 HOURS AS NEEDED
  27. COREG [Concomitant]
     Active Substance: CARVEDILOL
     Indication: Product used for unknown indication
     Dosage: 25MG 2X DAILY
     Route: 048
  28. CYANOCOBALAMIN [Concomitant]
     Active Substance: CYANOCOBALAMIN
     Indication: Product used for unknown indication
     Dosage: 2000MCG
     Route: 048
  29. DOXYCYCLINE [Concomitant]
     Active Substance: DOXYCYCLINE
     Indication: Product used for unknown indication
     Dosage: 100MG 2X DAILY FOR 10 DAYS
     Route: 048
  30. ARTIFICIAL TEARS [Concomitant]
     Active Substance: GLYCERIN\HYPROMELLOSES\POLYETHYLENE GLYCOL 400
     Indication: Product used for unknown indication
     Route: 047
  31. VICODIN [Concomitant]
     Active Substance: ACETAMINOPHEN\HYDROCODONE BITARTRATE
     Indication: Product used for unknown indication
  32. LOTEMAX [Concomitant]
     Active Substance: LOTEPREDNOL ETABONATE
     Indication: Product used for unknown indication
     Dosage: LEFT EYE GEL 4X DAILY FOR 30 DAYS
     Route: 047
  33. PROPARACAINE [Suspect]
     Active Substance: PROPARACAINE

REACTIONS (29)
  - Blindness [Not Recovered/Not Resolved]
  - Visual acuity reduced [Unknown]
  - Corneal perforation [Recovered/Resolved]
  - Corneal disorder [Recovering/Resolving]
  - Ulcerative keratitis [Unknown]
  - Cataract [Not Recovered/Not Resolved]
  - Corneal opacity [Unknown]
  - Corneal scar [Recovering/Resolving]
  - Eye inflammation [Recovering/Resolving]
  - Impaired work ability [Not Recovered/Not Resolved]
  - Iris adhesions [Unknown]
  - Telangiectasia [Unknown]
  - Patient dissatisfaction with treatment [Not Recovered/Not Resolved]
  - Impaired driving ability [Not Recovered/Not Resolved]
  - Flat anterior chamber of eye [Unknown]
  - Eye irritation [Unknown]
  - Cataract nuclear [Unknown]
  - Cataract nuclear [Recovering/Resolving]
  - Eye pain [Unknown]
  - Asthenopia [Unknown]
  - Conjunctival hyperaemia [Unknown]
  - Conjunctival hyperaemia [Recovered/Resolved]
  - Corneal opacity [Recovering/Resolving]
  - Corneal oedema [Recovering/Resolving]
  - Meibomian gland dysfunction [Unknown]
  - Blepharitis [Unknown]
  - Corneal thinning [Unknown]
  - Corneal epithelium defect [Recovered/Resolved]
  - Anterior chamber cell [Unknown]
